FAERS Safety Report 18963390 (Version 1)
Quarter: 2021Q1

REPORT INFORMATION
  Report Type: Spontaneous
  Country: US (occurrence: US)
  Receive Date: 20210303
  Receipt Date: 20210303
  Transmission Date: 20210420
  Serious: Yes (Disabling, Other)
  Sender: FDA-Public Use
  Company Number: None

PATIENT
  Age: 72 Year
  Sex: Female
  Weight: 60.75 kg

DRUGS (6)
  1. LISINOPRIL. [Concomitant]
     Active Substance: LISINOPRIL
  2. ATORVASTATION [Concomitant]
  3. WHOLE FOOD BASED NUTRITIONAL HEALTH SUPPORT ? STANDARD PROCESS [Concomitant]
  4. PREMARIN VAG [Concomitant]
  5. FOSAMAX [Concomitant]
     Active Substance: ALENDRONATE SODIUM
  6. LACRISERT [Suspect]
     Active Substance: HYDROXYPROPYL CELLULOSE
     Indication: DRY EYE
     Dosage: ?          QUANTITY:1 INSERT;OTHER FREQUENCY:BOTH EYES DAILY;?
     Route: 047
     Dates: start: 20041231, end: 20210302

REACTIONS (2)
  - Eye discharge [None]
  - Vision blurred [None]

NARRATIVE: CASE EVENT DATE: 20201231
